FAERS Safety Report 5851009-2 (Version None)
Quarter: 2008Q3

REPORT INFORMATION
  Report Type: 
  Country: None (occurrence: None)
  Receive Date: 20080820
  Receipt Date: 20080519
  Transmission Date: 20090109
  Serious: No
  Sender: FDA-Public Use
  Company Number: US-BAYER-200823464NA

PATIENT
  Age: 25 Year
  Sex: Female
  Weight: 54 kg

DRUGS (2)
  1. MIRENA [Suspect]
     Indication: CONTRACEPTION
     Route: 015
     Dates: start: 20080101
  2. ZOLOFT [Concomitant]
     Indication: DEPRESSION

REACTIONS (9)
  - AFFECT LABILITY [None]
  - AMENORRHOEA [None]
  - BREAST TENDERNESS [None]
  - FATIGUE [None]
  - FEELING ABNORMAL [None]
  - GENITAL HAEMORRHAGE [None]
  - NAUSEA [None]
  - OVARIAN CYST [None]
  - VOMITING [None]
